FAERS Safety Report 23877566 (Version 1)
Quarter: 2024Q2

REPORT INFORMATION
  Report Type: Spontaneous
  Country: CN (occurrence: CN)
  Receive Date: 20240521
  Receipt Date: 20240521
  Transmission Date: 20240716
  Serious: Yes (Other)
  Sender: FDA-Public Use
  Company Number: CN-EPICPHARMA-CN-2024EPCLIT00497

PATIENT
  Age: 67 Year
  Sex: Female

DRUGS (3)
  1. EPIRUBICIN HYDROCHLORIDE [Suspect]
     Active Substance: EPIRUBICIN HYDROCHLORIDE
     Indication: Follicular dendritic cell sarcoma
     Route: 065
     Dates: start: 20211012
  2. IFOSFAMIDE [Suspect]
     Active Substance: IFOSFAMIDE
     Indication: Follicular dendritic cell sarcoma
     Route: 065
     Dates: start: 20211012
  3. SINTILIMAB [Suspect]
     Active Substance: SINTILIMAB
     Indication: Follicular dendritic cell sarcoma
     Route: 065
     Dates: start: 20211012

REACTIONS (4)
  - Hypothyroidism [Unknown]
  - Leukopenia [Unknown]
  - Product use in unapproved indication [Unknown]
  - Therapy partial responder [Unknown]
